FAERS Safety Report 6739135-7 (Version None)
Quarter: 2010Q2

REPORT INFORMATION
  Report Type: 
  Country: None (occurrence: None)
  Receive Date: 20100520
  Receipt Date: 20100512
  Transmission Date: 20101027
  Serious: Yes (Other)
  Sender: FDA-Public Use
  Company Number: 007192

PATIENT
  Sex: Female
  Weight: 74 kg

DRUGS (10)
  1. ALPROSTADIL [Suspect]
     Indication: PERIPHERAL ISCHAEMIA
     Dosage: (40 UG BID INTRAVENOUS (NOT OTHERWISE SPECIFIED)
     Route: 042
     Dates: start: 20100211, end: 20100310
  2. PROMEDOL [Concomitant]
  3. ANALGIN /00039501/ [Concomitant]
  4. ALPRAZOLAM [Concomitant]
  5. NICOTINIC ACID [Concomitant]
  6. ACTOVEGIN [Concomitant]
  7. ACTRAPID /00646001/ [Concomitant]
  8. INSULIN, PROTAPHAN HUMAN [Concomitant]
  9. KETOROLAC TROMETHAMINE [Concomitant]
  10. PROTAPHANE /00646002/ [Concomitant]

REACTIONS (3)
  - BURSITIS [None]
  - CELLULITIS [None]
  - ISCHAEMIA [None]
